FAERS Safety Report 5062007-3 (Version None)
Quarter: 2006Q3

REPORT INFORMATION
  Report Type: 
  Country: None (occurrence: None)
  Receive Date: 20060703
  Receipt Date: 20051020
  Transmission Date: 20061208
  Serious: No
  Sender: FDA-Public Use
  Company Number: 2005S1010334

PATIENT
  Age: 43 Year
  Sex: Female

DRUGS (5)
  1. CLOZAPINE [Suspect]
     Indication: PSYCHOTIC DISORDER
     Dosage: 50 MG; HS; PO
     Route: 048
     Dates: start: 20050916
  2. TRIAMTERENE [Concomitant]
  3. ADIPEX [Concomitant]
  4. VENLAFAXINE HCL [Concomitant]
  5. HALOPERIDOL [Concomitant]

REACTIONS (2)
  - GRANULOCYTOPENIA [None]
  - LEUKOPENIA [None]
